FAERS Safety Report 14931238 (Version 2)
Quarter: 2018Q2

REPORT INFORMATION
  Report Type: Spontaneous
  Country: US (occurrence: US)
  Receive Date: 20180524
  Receipt Date: 20180628
  Transmission Date: 20180711
  Serious: No
  Sender: FDA-Public Use
  Company Number: US-ASTRAZENECA-2018SE64205

PATIENT
  Sex: Female
  Weight: 106.6 kg

DRUGS (1)
  1. BYDUREON BCISE [Suspect]
     Active Substance: EXENATIDE
     Indication: GLUCOSE TOLERANCE IMPAIRED
     Route: 058
     Dates: start: 201804

REACTIONS (6)
  - Injection site mass [Unknown]
  - Circumstance or information capable of leading to device use error [Unknown]
  - Product use in unapproved indication [Unknown]
  - Device issue [Unknown]
  - Off label use [Unknown]
  - Injection site bruising [Unknown]
